FAERS Safety Report 8432965-5 (Version None)
Quarter: 2012Q2

REPORT INFORMATION
  Report Type: 
  Country: None (occurrence: None)
  Receive Date: 20120613
  Receipt Date: 20120608
  Transmission Date: 20120825
  Serious: Yes (Hospitalization)
  Sender: FDA-Public Use
  Company Number: FR-ROCHE-1072987

PATIENT
  Sex: Male
  Weight: 53 kg

DRUGS (6)
  1. SINGULAIR [Concomitant]
  2. XOLAIR [Suspect]
     Indication: ASTHMA
     Dates: start: 20120523
  3. AIROMIR [Concomitant]
  4. DESLORATADINE [Concomitant]
  5. VENTOLIN [Concomitant]
  6. FLUTICASONE PROPIONATE/SALMETEROL [Concomitant]

REACTIONS (1)
  - ASTHMA [None]
